FAERS Safety Report 7781578-7 (Version None)
Quarter: 2011Q3

REPORT INFORMATION
  Report Type: 
  Country: None (occurrence: None)
  Receive Date: 20110927
  Receipt Date: 20110920
  Transmission Date: 20111222
  Serious: Yes (Hospitalization, Other)
  Sender: FDA-Public Use
  Company Number: JP-PFIZER INC-2011197984

PATIENT
  Age: 46 Year
  Sex: Male
  Weight: 69.7 kg

DRUGS (4)
  1. CADUET [Suspect]
     Indication: BLOOD CHOLESTEROL INCREASED
     Dosage: [AMLODIPINE 5MG/ ATORVASTATIN 10MG]
     Route: 048
     Dates: start: 20110210
  2. URINORM [Concomitant]
     Indication: GOUT
     Dosage: 25 MG, 1X/DAY
     Route: 048
     Dates: start: 20040804
  3. MICARDIS [Concomitant]
     Indication: HYPERTENSION
     Dosage: 40 MG, 1X/DAY
     Route: 048
     Dates: start: 20050910
  4. NORVASC [Concomitant]
     Indication: HYPERTENSION
     Dosage: 2.5 MG, 1X/DAY
     Route: 048
     Dates: start: 20070404

REACTIONS (6)
  - BLOOD CREATINE PHOSPHOKINASE INCREASED [None]
  - GASTROINTESTINAL DISORDER [None]
  - MYOPATHY [None]
  - FALL [None]
  - CHROMATURIA [None]
  - MUSCULAR WEAKNESS [None]
